FAERS Safety Report 19794835 (Version 1)
Quarter: 2021Q3

REPORT INFORMATION
  Report Type: Spontaneous
  Country: CN (occurrence: CN)
  Receive Date: 20210907
  Receipt Date: 20210907
  Transmission Date: 20211014
  Serious: Yes (Other)
  Sender: FDA-Public Use
  Company Number: CN-JIANGSU HENGRUI MEDICINE CO., LTD.-2118040

PATIENT
  Age: 62 Year
  Sex: Female

DRUGS (6)
  1. RAMOSETRON [Concomitant]
     Active Substance: RAMOSETRON HYDROCHLORIDE
     Route: 041
     Dates: start: 20200419, end: 20200531
  2. DEXAMETHASONE. [Concomitant]
     Active Substance: DEXAMETHASONE
     Route: 041
     Dates: start: 20200419, end: 20200531
  3. PANTOPRAZOLE SODIUM SESQUIHYDRATE [Concomitant]
     Active Substance: PANTOPRAZOLE SODIUM
     Route: 041
     Dates: start: 20200419, end: 20200531
  4. OXALIPLATIN INJECTION USP, 5 MG/ML, PACKAGED IN 50 MG/10 ML AND 100 MG [Suspect]
     Active Substance: OXALIPLATIN
     Indication: ADENOCARCINOMA GASTRIC
     Route: 041
     Dates: start: 20200419, end: 20200531
  5. DOCETAXEL. [Suspect]
     Active Substance: DOCETAXEL
     Route: 041
  6. TEGAFUR, GIMERACIL, OTERACIL POTASSIUM [Suspect]
     Active Substance: GIMERACIL\OTERACIL\TEGAFUR
     Route: 048
     Dates: start: 20200419

REACTIONS (7)
  - Decreased appetite [Unknown]
  - Nausea [Unknown]
  - Asthenia [Unknown]
  - Dyspnoea [Unknown]
  - Dermatitis exfoliative [Recovering/Resolving]
  - Product use in unapproved indication [Unknown]
  - Hypoaesthesia [Unknown]

NARRATIVE: CASE EVENT DATE: 20200419
